FAERS Safety Report 5935801-1 (Version None)
Quarter: 2008Q4

REPORT INFORMATION
  Report Type: 
  Country: None (occurrence: None)
  Receive Date: 20081030
  Receipt Date: 20081021
  Transmission Date: 20090506
  Serious: Yes (Hospitalization, Other)
  Sender: FDA-Public Use
  Company Number: PHHY2008JP24190

PATIENT

DRUGS (8)
  1. CYCLOSPORINE [Suspect]
     Indication: COLITIS ULCERATIVE
     Route: 042
  2. AZATHIOPRINE [Concomitant]
     Indication: COLITIS ULCERATIVE
  3. PREDNISOLONE [Concomitant]
     Indication: COLITIS ULCERATIVE
  4. METHYLPREDNISOLONE 16MG TAB [Concomitant]
     Indication: COLITIS ULCERATIVE
  5. PARA AMINOSALICYLIC ACID [Concomitant]
     Indication: COLITIS ULCERATIVE
  6. TPN [Concomitant]
  7. NON-DRUG: LEUKAPHERESIS [Concomitant]
  8. DIALYSIS [Concomitant]

REACTIONS (12)
  - ABDOMINAL PAIN UPPER [None]
  - BLOOD PRESSURE INCREASED [None]
  - COLOSTOMY [None]
  - CONVULSION [None]
  - HAEMATOCHEZIA [None]
  - ILEOSTOMY [None]
  - INTESTINAL RESECTION [None]
  - LARGE INTESTINE ANASTOMOSIS [None]
  - PANCREATITIS ACUTE [None]
  - PERITONEAL ADHESIONS [None]
  - REVERSIBLE POSTERIOR LEUKOENCEPHALOPATHY SYNDROME [None]
  - VOMITING [None]
